FAERS Safety Report 8947583 (Version 1)
Quarter: 2012Q4

REPORT INFORMATION
  Report Type: 
  Country: CN (occurrence: CN)
  Receive Date: 20121205
  Receipt Date: 20121205
  Transmission Date: 20130627
  Serious: Yes (Death, Hospitalization)
  Sender: FDA-Public Use
  Company Number: CN-BAYER-2012-127111

PATIENT
  Age: 73 Year
  Sex: Male

DRUGS (7)
  1. ACETYLSALICYLIC ACID({=100 MG) [Suspect]
     Dosage: Daily dose 100 mg
  2. ACETYLSALICYLIC ACID (} 100 MG) [Suspect]
     Dosage: 300 mg, UNK
  3. CLOPIDOGREL [Suspect]
     Dosage: Daily dose 75 mg
  4. CLOPIDOGREL [Suspect]
     Dosage: 600 mg, UNK
  5. TIROFIBAN [Suspect]
     Dosage: 25 ?g/kg, bolus over 3 minutes
  6. TIROFIBAN [Suspect]
     Dosage: 0.15 ?g/kg, Q1MIN
  7. HEPARIN [Suspect]
     Dosage: 5000 u, UNK

REACTIONS (6)
  - Pulmonary alveolar haemorrhage [Fatal]
  - Electrocardiogram ST segment elevation [None]
  - Atrioventricular block [None]
  - Coronary artery restenosis [None]
  - Coronary artery thrombosis [None]
  - Coronary artery stenosis [None]
